FAERS Safety Report 6026560-5 (Version None)
Quarter: 2009Q1

REPORT INFORMATION
  Report Type: 
  Country: None (occurrence: None)
  Receive Date: 20090102
  Receipt Date: 20081223
  Transmission Date: 20090719
  Serious: Yes (Hospitalization, Other)
  Sender: FDA-Public Use
  Company Number: US-ABBOTT-08P-163-0494726-00

PATIENT
  Sex: Female
  Weight: 118 kg

DRUGS (6)
  1. HUMIRA [Suspect]
     Indication: RHEUMATOID ARTHRITIS
     Route: 058
     Dates: start: 20070101
  2. LASIX [Concomitant]
     Indication: DRUG USE FOR UNKNOWN INDICATION
     Route: 048
  3. METHOTREXATE [Concomitant]
     Indication: RHEUMATOID ARTHRITIS
  4. DARVOCET [Concomitant]
     Indication: RHEUMATOID ARTHRITIS
  5. NEURONTIN [Concomitant]
     Indication: NEUROPATHY PERIPHERAL
  6. LEXAPRO [Concomitant]
     Indication: DEPRESSION

REACTIONS (11)
  - BLINDNESS UNILATERAL [None]
  - CATARACT [None]
  - CONFUSIONAL STATE [None]
  - DIARRHOEA [None]
  - GLAUCOMA [None]
  - HYPONATRAEMIA [None]
  - IRITIS [None]
  - MYODESOPSIA [None]
  - PNEUMONIA [None]
  - SCAR [None]
  - VOMITING [None]
